FAERS Safety Report 9859769 (Version 1)
Quarter: 2014Q1

REPORT INFORMATION
  Report Type: Report from Study
  Country: US (occurrence: US)
  Receive Date: 20140131
  Receipt Date: 20140131
  Transmission Date: 20141002
  Serious: Yes (Hospitalization)
  Sender: FDA-Public Use
  Company Number: PHHY2014US010639

PATIENT
  Age: 69 Year
  Sex: Male

DRUGS (21)
  1. OXALIPLATIN [Suspect]
     Indication: COLORECTAL CANCER METASTATIC
     Dosage: 186 MG, DAILY
     Route: 042
     Dates: start: 20120724
  2. OXALIPLATIN [Suspect]
     Route: 042
     Dates: start: 20120925
  3. OXALIPLATIN [Suspect]
     Dosage: 186 MG, DAILY
     Route: 042
     Dates: start: 20120724
  4. 5-FLUOROURACIL [Suspect]
     Indication: COLORECTAL CANCER METASTATIC
     Dosage: 6132 MG, DAILY
     Route: 042
     Dates: start: 20120724
  5. 5-FLUOROURACIL [Suspect]
     Route: 042
     Dates: start: 20120925
  6. 5-FLUOROURACIL [Suspect]
     Dosage: 4862 MG, UNK
     Route: 042
     Dates: start: 20140107
  7. LEUCOVORIN CALCIUM [Suspect]
     Indication: COLORECTAL CANCER METASTATIC
     Dosage: 876 MG, DAILY
     Route: 042
     Dates: start: 20120724
  8. LEUCOVORIN CALCIUM [Suspect]
     Dates: start: 20120925
  9. BEVACIZUMAB [Suspect]
     Indication: COLORECTAL CANCER METASTATIC
     Dosage: 495 MG, DAILY
     Route: 042
     Dates: start: 20120724
  10. BEVACIZUMAB [Suspect]
     Route: 042
     Dates: start: 20120911
  11. BEVACIZUMAB [Suspect]
     Dosage: 494 MG, UNK
     Route: 042
     Dates: start: 20140107
  12. PLACEBO [Suspect]
     Route: 042
  13. NORVASC [Concomitant]
     Indication: HYPERTENSION
     Dosage: 10 MG, QD
     Route: 048
     Dates: start: 199708
  14. CRESTOR [Concomitant]
     Indication: HYPERCHOLESTEROLAEMIA
     Dosage: 5 MG, DAILY
     Dates: start: 201205
  15. SIMVASTATIN [Concomitant]
     Indication: HYPERCHOLESTEROLAEMIA
     Dosage: 40 MG, QD
     Route: 048
     Dates: start: 201205
  16. CARDURA [Concomitant]
     Indication: BENIGN PROSTATIC HYPERPLASIA
     Dosage: 2 MG, QD
     Route: 048
     Dates: start: 199708
  17. FLOMAX//TAMSULOSIN HYDROCHLORIDE [Concomitant]
     Indication: BENIGN PROSTATIC HYPERPLASIA
     Dosage: 0.4 MG, QD
     Route: 048
     Dates: start: 201205
  18. SYNTHROID [Concomitant]
     Dosage: 44 MG, UNK
     Dates: start: 200901
  19. LASIX [Concomitant]
     Dosage: 20 MG, UNK
     Dates: start: 20130227
  20. CITALOPRAM [Concomitant]
     Indication: DEPRESSION
     Dosage: 30 MG, UNK
     Dates: start: 20121231
  21. COUMADIN//WARFARIN SODIUM [Concomitant]
     Indication: PULMONARY EMBOLISM
     Dosage: 5 MG, UNK
     Dates: start: 20120921

REACTIONS (2)
  - Intestinal obstruction [Unknown]
  - Abdominal pain [Not Recovered/Not Resolved]
